FAERS Safety Report 8019711-4 (Version None)
Quarter: 2012Q1

REPORT INFORMATION
  Report Type: 
  Country: None (occurrence: None)
  Receive Date: 20120103
  Receipt Date: 20111221
  Transmission Date: 20120608
  Serious: Yes (Life-Threatening, Other)
  Sender: FDA-Public Use
  Company Number: JP-GLAXOSMITHKLINE-B0667136A

PATIENT
  Sex: Female
  Weight: 47 kg

DRUGS (8)
  1. PLAVIX [Concomitant]
     Indication: ANGINA PECTORIS
     Dosage: 75MG PER DAY
     Route: 048
  2. EPADEL [Concomitant]
     Indication: HYPERLIPIDAEMIA
     Dosage: 2400MG PER DAY
     Route: 048
  3. ASPIRIN [Concomitant]
     Indication: ANGINA PECTORIS
     Dosage: 100MG PER DAY
     Route: 048
  4. CARVEDILOL [Concomitant]
     Indication: CARDIAC FAILURE
     Dosage: 5MG PER DAY
     Route: 048
  5. DIOVAN [Concomitant]
     Indication: HYPERTENSION
     Dosage: 80MG PER DAY
     Route: 048
  6. LEVOTHYROXINE SODIUM [Concomitant]
     Indication: HYPOTHYROIDISM
     Dosage: 75MCG PER DAY
     Route: 048
  7. VALTREX [Suspect]
     Indication: HERPES ZOSTER
     Dosage: 2500MG PER DAY
     Route: 048
     Dates: start: 20100720, end: 20100721
  8. VALTREX [Suspect]
     Dosage: 1000MG PER DAY
     Route: 048
     Dates: start: 20100722, end: 20100727

REACTIONS (10)
  - VISUAL IMPAIRMENT [None]
  - ALTERED STATE OF CONSCIOUSNESS [None]
  - PUPIL FIXED [None]
  - EPILEPSY [None]
  - POSTERIOR REVERSIBLE ENCEPHALOPATHY SYNDROME [None]
  - QUADRIPLEGIA [None]
  - UNRESPONSIVE TO STIMULI [None]
  - CEREBRAL INFARCTION [None]
  - ENCEPHALOPATHY [None]
  - COMA SCALE ABNORMAL [None]
